FAERS Safety Report 14142062 (Version 4)
Quarter: 2021Q3

REPORT INFORMATION
  Report Type: Report from Study
  Country: US (occurrence: US)
  Receive Date: 20171030
  Receipt Date: 20210712
  Transmission Date: 20211014
  Serious: Yes (Death, Hospitalization)
  Sender: FDA-Public Use
  Company Number: US-PUMA BIOTECHNOLOGY, LTD.-2017US013867

PATIENT

DRUGS (3)
  1. NERLYNX [Suspect]
     Active Substance: NERATINIB
     Dosage: 160 MG, DAILY
     Route: 048
     Dates: start: 20170929, end: 2017
  2. NERLYNX [Suspect]
     Active Substance: NERATINIB
     Indication: BREAST CANCER STAGE IV
     Dosage: 240 MG, DAILY
     Route: 048
     Dates: start: 20170907, end: 20170929
  3. NERLYNX [Suspect]
     Active Substance: NERATINIB
     Dosage: 120 MG, DAILY
     Route: 048
     Dates: start: 20171107, end: 20171222

REACTIONS (11)
  - Diarrhoea [Unknown]
  - Back pain [Unknown]
  - Death [Fatal]
  - Anaemia [Unknown]
  - Neck pain [Unknown]
  - Fatigue [Unknown]
  - Decreased appetite [Unknown]
  - Breast cancer metastatic [Unknown]
  - Quality of life decreased [Unknown]
  - Off label use [Unknown]
  - Renal failure [Unknown]

NARRATIVE: CASE EVENT DATE: 201710
